FAERS Safety Report 5800863-9 (Version None)
Quarter: 2008Q3

REPORT INFORMATION
  Report Type: 
  Country: None (occurrence: None)
  Receive Date: 20080703
  Receipt Date: 20080520
  Transmission Date: 20090109
  Serious: Yes (Other)
  Sender: FDA-Public Use
  Company Number: PHHY2008BR01785

PATIENT
  Age: 81 Year
  Sex: Female

DRUGS (6)
  1. DIOVAN [Suspect]
     Indication: HYPERTENSION
     Dosage: 320 MG, QD
     Route: 048
  2. FORASEQ [Suspect]
     Indication: BRONCHITIS
     Dosage: 12/400 MCG, BID
  3. SPIRIVA [Concomitant]
     Indication: BRONCHITIS
     Dosage: UNK, QD
  4. PURAN T4 [Concomitant]
     Indication: THYROID DISORDER
     Dosage: 25 MG, QD
     Route: 048
     Dates: start: 19780101
  5. RYTHMOL [Concomitant]
     Indication: TACHYCARDIA
     Dosage: 300 MG, QD
     Route: 048
     Dates: start: 20030101
  6. VENLAFAXINE HYDROCHLORIDE [Concomitant]
     Dosage: UNK, QD
     Dates: start: 20080208

REACTIONS (14)
  - ARTHRALGIA [None]
  - BACK PAIN [None]
  - BONE PAIN [None]
  - BRONCHITIS [None]
  - DEFORMITY [None]
  - DEPRESSION [None]
  - DYSPNOEA [None]
  - EMOTIONAL DISORDER [None]
  - FEELING ABNORMAL [None]
  - GAIT DISTURBANCE [None]
  - PAIN IN EXTREMITY [None]
  - PALPITATIONS [None]
  - PRURITUS [None]
  - WEIGHT INCREASED [None]
